FAERS Safety Report 18708703 (Version 1)
Quarter: 2021Q1

REPORT INFORMATION
  Report Type: Spontaneous
  Country: FR (occurrence: FR)
  Receive Date: 20210106
  Receipt Date: 20210106
  Transmission Date: 20210419
  Serious: Yes (Life-Threatening)
  Sender: FDA-Public Use
  Company Number: FR-TEVA-2020-FR-1864868

PATIENT
  Age: 76 Year
  Sex: Male
  Weight: 93 kg

DRUGS (9)
  1. ROSUVASTATINE [Concomitant]
     Active Substance: ROSUVASTATIN
  2. SOTALOL (CHLORHYDRATE DE) [Suspect]
     Active Substance: SOTALOL
     Indication: PRODUCT USED FOR UNKNOWN INDICATION
     Dosage: 1DF
     Route: 048
     Dates: end: 201909
  3. PERINDOPRIL [Concomitant]
     Active Substance: PERINDOPRIL
  4. KAYEXALATE [Concomitant]
     Active Substance: SODIUM POLYSTYRENE SULFONATE
  5. RILMENIDINE [Concomitant]
     Active Substance: RILMENIDINE
  6. TRAMADOL (CHLORHYDRATE DE) [Concomitant]
     Active Substance: TRAMADOL HYDROCHLORIDE
  7. COUMADINE [Suspect]
     Active Substance: WARFARIN SODIUM
     Indication: ATRIAL FIBRILLATION
     Dosage: 1.5DF
     Route: 048
     Dates: end: 20190923
  8. PARACETAMOL [Concomitant]
     Active Substance: ACETAMINOPHEN
  9. CINACALCET. [Concomitant]
     Active Substance: CINACALCET

REACTIONS (1)
  - Shock haemorrhagic [Recovered/Resolved with Sequelae]

NARRATIVE: CASE EVENT DATE: 20190923
